FAERS Safety Report 16413989 (Version 1)
Quarter: 2019Q2

REPORT INFORMATION
  Report Type: Spontaneous
  Country: US (occurrence: US)
  Receive Date: 20190611
  Receipt Date: 20190611
  Transmission Date: 20190711
  Serious: No
  Sender: FDA-Public Use
  Company Number: US-MYLANLABS-2019M1048778

PATIENT
  Sex: Male

DRUGS (1)
  1. ETIDRONATE [Suspect]
     Active Substance: ETIDRONATE DISODIUM
     Indication: ARTERIOSCLEROSIS
     Dosage: 2 WEEKS AND THEN OFF FOR 2 MONTHS FOR 12 CYCLES, CYCLE
     Route: 065

REACTIONS (1)
  - Product use in unapproved indication [Not Recovered/Not Resolved]
